FAERS Safety Report 9887474 (Version 1)
Quarter: 2014Q1

REPORT INFORMATION
  Report Type: Spontaneous
  Country: US (occurrence: None)
  Receive Date: 20140207
  Receipt Date: 20140207
  Transmission Date: 20141002
  Serious: Yes (Life-Threatening, Hospitalization)
  Sender: FDA-Public Use
  Company Number: None

PATIENT
  Age: 64 Year
  Sex: Male
  Weight: 63.5 kg

DRUGS (4)
  1. RIVAROXABAN [Suspect]
     Route: 048
  2. ATORVASTATIN [Concomitant]
  3. FENOFIBRATE [Concomitant]
  4. FISH OIL [Concomitant]

REACTIONS (4)
  - Anaemia [None]
  - Pleural effusion [None]
  - Shock haemorrhagic [None]
  - Haemothorax [None]
